FAERS Safety Report 9722478 (Version 1)
Quarter: 2013Q4

REPORT INFORMATION
  Report Type: Spontaneous
  Country: US (occurrence: None)
  Receive Date: 20131127
  Receipt Date: 20131127
  Transmission Date: 20140711
  Serious: Yes (Other)
  Sender: FDA-Public Use
  Company Number: None

PATIENT
  Age: 79 Year
  Sex: Male
  Weight: 88.91 kg

DRUGS (1)
  1. ZOLEDRONIC ACID [Suspect]
     Indication: OSTEOPENIA
     Route: 042
     Dates: start: 20131111

REACTIONS (5)
  - Pyrexia [None]
  - Joint swelling [None]
  - Local swelling [None]
  - Arthralgia [None]
  - Sinusitis [None]
